FAERS Safety Report 9913397 (Version 1)
Quarter: 2014Q1

REPORT INFORMATION
  Report Type: Report from Study
  Country: US (occurrence: US)
  Receive Date: 20140220
  Receipt Date: 20140220
  Transmission Date: 20141002
  Serious: Yes (Death, Other)
  Sender: FDA-Public Use
  Company Number: US-ASTELLAS-2014US001734

PATIENT
  Age: 69 Year
  Sex: Male

DRUGS (14)
  1. ERLOTINIB TABLET [Suspect]
     Indication: LUNG NEOPLASM MALIGNANT
     Dosage: UNK
     Route: 065
  2. AVASTIN /01555201/ [Suspect]
     Indication: LUNG NEOPLASM MALIGNANT
     Dosage: 1350 MG, IN 100 ML NORMAL SALINE
     Route: 042
     Dates: start: 20100518
  3. AVASTIN /01555201/ [Suspect]
     Dosage: 1316 MG, IN 100 ML NORMAL SALINE
     Route: 042
     Dates: start: 20100608
  4. AVASTIN /01555201/ [Suspect]
     Dosage: 1248 MG, IN 100 ML NORMAL SALINE
     Route: 042
     Dates: start: 20100730
  5. AVASTIN /01555201/ [Suspect]
     Dosage: 1167 MG, IN 100 ML NORMAL SALINE
     Route: 042
     Dates: start: 20100817
  6. PEMETREXED                         /01493902/ [Concomitant]
     Indication: PRODUCT USED FOR UNKNOWN INDICATION
     Dosage: UNK
     Route: 042
  7. VITAMIN B12                        /00056201/ [Concomitant]
     Indication: PRODUCT USED FOR UNKNOWN INDICATION
     Dosage: UNK
     Route: 030
  8. DOCETAXEL [Concomitant]
     Indication: PRODUCT USED FOR UNKNOWN INDICATION
     Dosage: UNK
     Route: 042
  9. PALONOSETRON [Concomitant]
     Indication: PRODUCT USED FOR UNKNOWN INDICATION
     Dosage: UNK
     Route: 042
  10. DECADRON                           /00016001/ [Concomitant]
     Indication: PRODUCT USED FOR UNKNOWN INDICATION
     Dosage: UNK
     Route: 048
  11. NEULASTA [Concomitant]
     Indication: PRODUCT USED FOR UNKNOWN INDICATION
     Dosage: UNK
     Route: 065
  12. CARBOPLATIN [Concomitant]
     Indication: PRODUCT USED FOR UNKNOWN INDICATION
     Dosage: 734 MG, UNKNOWN/D
     Route: 042
  13. ONDANSETRON [Concomitant]
     Indication: PRODUCT USED FOR UNKNOWN INDICATION
     Dosage: 8 MG, UNKNOWN/D
     Route: 042
  14. DEXAMETHASONE [Concomitant]
     Indication: PRODUCT USED FOR UNKNOWN INDICATION
     Dosage: 10 MG, UNKNOWN/D
     Route: 042

REACTIONS (5)
  - Death [Fatal]
  - Disease progression [Unknown]
  - Mobility decreased [Unknown]
  - Decreased appetite [Recovering/Resolving]
  - Fatigue [Unknown]
